FAERS Safety Report 6693842-3 (Version None)
Quarter: 2010Q2

REPORT INFORMATION
  Report Type: 
  Country: None (occurrence: None)
  Receive Date: 20100423
  Receipt Date: 20100415
  Transmission Date: 20101027
  Serious: Yes (Other)
  Sender: FDA-Public Use
  Company Number: US-BRISTOL-MYERS SQUIBB COMPANY-15071798

PATIENT
  Age: 55 Year
  Sex: Female

DRUGS (25)
  1. METFORMIN HCL [Suspect]
     Indication: DIABETES MELLITUS
     Route: 065
  2. CARAFATE [Suspect]
     Indication: GASTROOESOPHAGEAL REFLUX DISEASE
     Dosage: TABS
     Route: 048
  3. GABAPENTIN [Suspect]
     Indication: DIABETIC NEUROPATHY
     Dates: start: 20040101
  4. GABAPENTIN [Suspect]
     Indication: FIBROMYALGIA
     Dates: start: 20040101
  5. NITROLINGUAL [Suspect]
     Indication: CHEST PAIN
     Route: 065
  6. EPIPEN [Suspect]
     Indication: MULTIPLE ALLERGIES
     Route: 062
  7. SIMVASTATIN [Suspect]
  8. JANUMET [Suspect]
     Indication: DIABETES MELLITUS
     Dosage: 1 DF = 50/500MG
  9. LOZOL [Suspect]
     Indication: FLUID RETENTION
     Dosage: TABS
     Route: 048
  10. ZYRTEC [Suspect]
     Indication: MULTIPLE ALLERGIES
     Route: 065
     Dates: start: 20090101
  11. VICODIN [Suspect]
     Indication: ARTHRALGIA
     Dosage: 1 DF = 7.5MG/325MG
     Dates: start: 20060101
  12. ZANAFLEX [Suspect]
     Indication: MUSCLE SPASMS
     Route: 065
     Dates: start: 20090101
  13. DIOVAN [Suspect]
     Indication: HYPERTENSION
     Route: 065
     Dates: start: 20020101
  14. BUPROPION [Suspect]
     Indication: DEPRESSION
     Route: 065
  15. KLONOPIN [Suspect]
     Indication: ANXIETY
     Route: 065
  16. KLONOPIN [Suspect]
     Indication: PANIC ATTACK
     Route: 065
  17. PRILOSEC [Suspect]
     Indication: GASTROOESOPHAGEAL REFLUX DISEASE
     Route: 065
  18. AGGRENOX [Suspect]
     Route: 048
     Dates: start: 20091201
  19. FLONASE [Suspect]
     Indication: HYPERSENSITIVITY
     Dosage: 2 DF = 2 SPRYS PER NOSTRIL
     Route: 065
  20. FLOVENT [Suspect]
     Indication: ASTHMA
     Dosage: 2 PUFFS
     Route: 065
  21. VENTOLIN [Suspect]
     Indication: ASTHMA
     Route: 065
  22. IMITREX [Suspect]
     Indication: MIGRAINE
  23. LORTAB [Suspect]
     Route: 048
  24. MULTI-VITAMINS [Suspect]
     Route: 065
  25. FLEXERIL [Concomitant]

REACTIONS (2)
  - CARDIAC DISORDER [None]
  - MEMORY IMPAIRMENT [None]
